FAERS Safety Report 14723675 (Version 2)
Quarter: 2018Q3

REPORT INFORMATION
  Report Type: Spontaneous
  Country: IT (occurrence: IT)
  Receive Date: 20180405
  Receipt Date: 20180806
  Transmission Date: 20181010
  Serious: Yes (Death, Other)
  Sender: FDA-Public Use
  Company Number: IT-BAUSCH-BL-2018-008985

PATIENT
  Age: 67 Year
  Sex: Male

DRUGS (9)
  1. BORTEZOMIB. [Suspect]
     Active Substance: BORTEZOMIB
     Indication: CARDIAC AMYLOIDOSIS
     Dosage: 1.3 MG/SQM/DAY 3 CYCLES
     Route: 042
  2. MELPHALAN. [Suspect]
     Active Substance: MELPHALAN
     Indication: CARDIAC AMYLOIDOSIS
     Dosage: 3 CYCLES
     Route: 065
  3. THALIDOMIDE [Suspect]
     Active Substance: THALIDOMIDE
     Route: 065
     Dates: start: 200605
  4. SOLDESAM [Suspect]
     Active Substance: DEXAMETHASONE
     Dosage: 3 CYCLES FOR 4 DAYS EVERY 28 DAYS
     Route: 048
  5. THALIDOMIDE [Suspect]
     Active Substance: THALIDOMIDE
     Indication: CARDIAC AMYLOIDOSIS
     Route: 065
     Dates: start: 200509
  6. SOLDESAM [Suspect]
     Active Substance: DEXAMETHASONE
     Indication: CARDIAC AMYLOIDOSIS
     Dosage: FOR 4 DAYS/MONTHLY
     Route: 048
     Dates: start: 200507, end: 200512
  7. SOLDESAM [Suspect]
     Active Substance: DEXAMETHASONE
     Dosage: ON THE 1ST, 8TH, 15TH, AND 22ND DAYS
     Route: 048
  8. SOLDESAM [Suspect]
     Active Substance: DEXAMETHASONE
     Route: 065
     Dates: start: 200810
  9. BORTEZOMIB. [Suspect]
     Active Substance: BORTEZOMIB
     Route: 065

REACTIONS (9)
  - Condition aggravated [Recovering/Resolving]
  - Respiratory failure [Fatal]
  - Lactic acidosis [Fatal]
  - Hypotension [Fatal]
  - Herpes virus infection [Recovering/Resolving]
  - Azotaemia [Recovering/Resolving]
  - Lung infection [Recovering/Resolving]
  - Cardiac failure [Recovering/Resolving]
  - Polyneuropathy [Recovering/Resolving]
